FAERS Safety Report 24580469 (Version 3)
Quarter: 2024Q4

REPORT INFORMATION
  Report Type: Report from Study
  Country: JP (occurrence: JP)
  Receive Date: 20241105
  Receipt Date: 20241120
  Transmission Date: 20250114
  Serious: Yes (Hospitalization)
  Sender: SHIONOGI
  Company Number: JP-shionogi-202400001673

PATIENT
  Age: 27 Year
  Sex: Female
  Weight: 48 kg

DRUGS (13)
  1. CEFIDEROCOL [Suspect]
     Active Substance: CEFIDEROCOL
     Indication: Pseudomonas infection
     Route: 041
     Dates: start: 20240220, end: 20240304
  2. CEFIDEROCOL [Suspect]
     Active Substance: CEFIDEROCOL
     Indication: Liver abscess
  3. CEFIDEROCOL [Suspect]
     Active Substance: CEFIDEROCOL
     Indication: Cholangitis
  4. AMPICILLIN\CLOXACILLIN [Concomitant]
     Active Substance: AMPICILLIN\CLOXACILLIN
     Indication: Pseudomonas infection
     Route: 065
     Dates: start: 20240220, end: 20240304
  5. AMPICILLIN\CLOXACILLIN [Concomitant]
     Active Substance: AMPICILLIN\CLOXACILLIN
     Indication: Liver abscess
  6. AMPICILLIN\CLOXACILLIN [Concomitant]
     Active Substance: AMPICILLIN\CLOXACILLIN
     Indication: Cholangitis
  7. OMEPRAZOLE [Concomitant]
     Active Substance: OMEPRAZOLE
     Indication: Prophylaxis
     Dosage: SINCE BEFORE THE START OF FETROJA
     Route: 048
  8. PANTOL [PANTHENOL] [Concomitant]
     Indication: Product used for unknown indication
     Dosage: SINCE BEFORE THE START OF FETROJA
     Route: 065
     Dates: end: 20240314
  9. HERBALS [Concomitant]
     Active Substance: HERBALS
     Indication: Product used for unknown indication
     Dosage: SINCE BEFORE THE START OF FETROJA
     Route: 048
  10. MIYA-BM [Concomitant]
     Active Substance: CLOSTRIDIUM BUTYRICUM SPORES STRAIN M-55
     Indication: Product used for unknown indication
     Dosage: SINCE BEFORE THE START OF FETROJA
     Route: 048
  11. MOSAPRIDE CITRATE [Concomitant]
     Active Substance: MOSAPRIDE CITRATE
     Indication: Product used for unknown indication
     Dosage: SINCE BEFORE THE START OF FETROJA
     Route: 048
  12. PREDNISOLONE [Concomitant]
     Active Substance: PREDNISOLONE
     Indication: Product used for unknown indication
     Route: 048
     Dates: start: 20240228
  13. SOLU-MEDROL [Concomitant]
     Active Substance: METHYLPREDNISOLONE SODIUM SUCCINATE
     Indication: Product used for unknown indication
     Route: 065
     Dates: start: 20240221, end: 20240227

REACTIONS (1)
  - Portal vein stenosis [Recovered/Resolved]

NARRATIVE: CASE EVENT DATE: 20240226
